FAERS Safety Report 9628894 (Version 1)
Quarter: 2013Q4

REPORT INFORMATION
  Report Type: Spontaneous
  Country: FR (occurrence: FR)
  Receive Date: 20131017
  Receipt Date: 20131017
  Transmission Date: 20140711
  Serious: Yes (Other)
  Sender: FDA-Public Use
  Company Number: PHHY2013FR114022

PATIENT
  Sex: Female

DRUGS (6)
  1. FUROSEMIDE [Suspect]
     Indication: OEDEMA
  2. BETAMETHASONE [Suspect]
     Route: 064
  3. CAFFEINE [Suspect]
     Indication: APNOEA
     Dosage: 10 MG/KG, UNK
  4. CAFFEINE [Suspect]
     Dosage: 2.5 MG/KG, DAILY
  5. DOXAPRAM [Suspect]
     Indication: APNOEA
     Dosage: 1 MG/KG, PER HOUR
     Route: 042
  6. DOXAPRAM [Suspect]
     Dosage: 0.75 MG/KG, PER HOUR

REACTIONS (4)
  - Hypokalaemia [Recovered/Resolved]
  - Neonatal respiratory distress syndrome [Unknown]
  - Premature baby [Unknown]
  - Foetal exposure during pregnancy [Unknown]
